FAERS Safety Report 5214716-0 (Version None)
Quarter: 2006Q4

REPORT INFORMATION
  Report Type: 
  Country: None (occurrence: None)
  Receive Date: 20061113
  Receipt Date: 20060818
  Transmission Date: 20070319
  Serious: Yes (Hospitalization)
  Sender: FDA-Public Use
  Company Number: US-JNJFOC-20060804712

PATIENT
  Age: 65 Year
  Sex: Male

DRUGS (2)
  1. LEVAQUIN [Suspect]
     Indication: PNEUMONIA
     Dosage: 750 MG, IN 1 DAY, INTRAVENOUS
     Route: 042
     Dates: start: 20060702, end: 20060712
  2. PREDNISONE TAB [Concomitant]

REACTIONS (1)
  - TENDON RUPTURE [None]
